FAERS Safety Report 8076225-3 (Version None)
Quarter: 2012Q1

REPORT INFORMATION
  Report Type: 
  Country: None (occurrence: None)
  Receive Date: 20120127
  Receipt Date: 20120120
  Transmission Date: 20120608
  Serious: Yes (Hospitalization)
  Sender: FDA-Public Use
  Company Number: FR-PFIZER INC-2012017563

PATIENT
  Sex: Male

DRUGS (1)
  1. IBUPROFEN (ADVIL) [Suspect]
     Indication: PYREXIA
     Dosage: 1 OR 2 TABLETS 3 TIMES A DAY

REACTIONS (2)
  - RENAL FAILURE [None]
  - URINARY RETENTION [None]
